FAERS Safety Report 9340255 (Version 4)
Quarter: 2014Q2

REPORT INFORMATION
  Report Type: Spontaneous
  Country: US (occurrence: US)
  Receive Date: 20130610
  Receipt Date: 20140609
  Transmission Date: 20141212
  Serious: No
  Sender: FDA-Public Use
  Company Number: US-ASTELLAS-2013US005423

PATIENT
  Age: 82 Year
  Sex: Male

DRUGS (2)
  1. XTANDI [Suspect]
     Indication: PROSTATE CANCER
     Route: 048
     Dates: start: 20130110
  2. XTANDI [Suspect]
     Route: 048

REACTIONS (9)
  - Rhinorrhoea [Unknown]
  - Dysphonia [Recovering/Resolving]
  - Feeling cold [Unknown]
  - Dyspepsia [Recovering/Resolving]
  - Rash [Unknown]
  - Salivary hypersecretion [Unknown]
  - Abdominal discomfort [Recovering/Resolving]
  - Off label use [Unknown]
  - Eating disorder [Recovering/Resolving]
